FAERS Safety Report 10243802 (Version 1)
Quarter: 2014Q1

REPORT INFORMATION
  Report Type: Spontaneous
  Country: US (occurrence: None)
  Receive Date: 20140306
  Receipt Date: 20140306
  Transmission Date: 20141002
  Serious: Yes (Other)
  Sender: FDA-Public Use
  Company Number: 163-21880-13113981

PATIENT
  Age: 63 Year
  Sex: Female
  Weight: 56.7 kg

DRUGS (8)
  1. REVLIMID (LENALIDOMIDE) (15 MILLIGRAM, CAPSULES) [Suspect]
     Indication: PLASMA CELL MYELOMA
     Dosage: 15 MG, 21 IN 28 D, PO
     Route: 048
     Dates: start: 20130504
  2. DECADRON (DEXAMETHASONE) [Suspect]
     Indication: PRODUCT USED FOR UNKNOWN INDICATION
     Dosage: 40 MG, DAYS 1, 8, 15, AND 22, PO
     Route: 048
  3. ACYCLOVIR (ACICLOVIR) (UNKNOWN) [Concomitant]
  4. ASA (ACETYLSALICYLIC ACID) (UNKNOWN) [Concomitant]
  5. ENOXAPARIN (ENOXAPARIN) (UNKNOWN) [Concomitant]
  6. VELCADE (BORTEZOMIB) (UNKNOWN) [Concomitant]
  7. ZOMETA (ZOLEDRONIC ACID) (UNKNOWN) [Concomitant]
  8. ZYPREXA (OLANZAPINE) (UNKNOWN) [Concomitant]

REACTIONS (2)
  - Swelling face [None]
  - Blood pressure increased [None]
